FAERS Safety Report 7470043-2 (Version None)
Quarter: 2011Q2

REPORT INFORMATION
  Report Type: 
  Country: None (occurrence: None)
  Receive Date: 20110510
  Receipt Date: 20110503
  Transmission Date: 20111010
  Serious: Yes (Other)
  Sender: FDA-Public Use
  Company Number: US-PFIZER INC-2011087770

PATIENT
  Sex: Female

DRUGS (4)
  1. GEODON [Suspect]
     Dosage: 80 MG AT BEDTIME
  2. KLONOPIN [Concomitant]
     Dosage: 0.5 DF, 3X/DAY
  3. GEODON [Suspect]
     Indication: MAJOR DEPRESSION
     Dosage: 120 MG AT BEDTIME, FOR 4 WKS
     Route: 048
     Dates: start: 20090108, end: 20110302
  4. LEXAPRO [Concomitant]
     Dosage: UNK

REACTIONS (1)
  - ECHOLALIA [None]
